FAERS Safety Report 7144431-8 (Version None)
Quarter: 2010Q4

REPORT INFORMATION
  Report Type: 
  Country: None (occurrence: None)
  Receive Date: 20101208
  Receipt Date: 20101029
  Transmission Date: 20110411
  Serious: Yes (Hospitalization)
  Sender: FDA-Public Use
  Company Number: US-BAYER-201041071NA

PATIENT
  Sex: Female
  Weight: 50.455 kg

DRUGS (8)
  1. YAZ [Suspect]
     Indication: MENSTRUAL DISORDER
     Dosage: UNK UNK, QD
     Route: 048
     Dates: start: 20080101, end: 20090801
  2. IBUPROFEN [Concomitant]
     Indication: HEADACHE
  3. ZOLOFT [Concomitant]
     Dosage: 50 MG (DAILY DOSE), ,
  4. ZOLOFT [Concomitant]
     Indication: DEPRESSION
  5. NEXIUM [Concomitant]
     Dosage: 40 MG (DAILY DOSE), ,
  6. REGLAN [Concomitant]
     Indication: VOMITING
     Dosage: BEFORE MEALS
  7. REGLAN [Concomitant]
     Indication: NAUSEA
  8. ZANTAC [Concomitant]
     Dosage: 50 MG (DAILY DOSE), BID,

REACTIONS (22)
  - ABDOMINAL PAIN [None]
  - ABDOMINAL PAIN UPPER [None]
  - ASTHMA [None]
  - BILIARY DYSKINESIA [None]
  - CHEST DISCOMFORT [None]
  - CONDITION AGGRAVATED [None]
  - DEPRESSION [None]
  - DIARRHOEA [None]
  - DUODENITIS [None]
  - DYSPNOEA [None]
  - FOOD ALLERGY [None]
  - GASTRIC POLYPS [None]
  - GASTRITIS [None]
  - GASTROOESOPHAGEAL REFLUX DISEASE [None]
  - MENTAL DISORDER [None]
  - MULTIPLE INJURIES [None]
  - NO THERAPEUTIC RESPONSE [None]
  - OESOPHAGITIS [None]
  - PNEUMOMEDIASTINUM [None]
  - PNEUMOTHORAX [None]
  - PRODUCT QUALITY ISSUE [None]
  - SINUS TACHYCARDIA [None]
